FAERS Safety Report 7274358-2 (Version None)
Quarter: 2011Q1

REPORT INFORMATION
  Report Type: 
  Country: None (occurrence: None)
  Receive Date: 20110131
  Receipt Date: 20110131
  Transmission Date: 20110831
  Serious: Yes (Other)
  Sender: FDA-Public Use
  Company Number: None

PATIENT
  Sex: Male
  Weight: 83.2 kg

DRUGS (7)
  1. PROCRIT [Concomitant]
  2. LEVITRA [Concomitant]
  3. REVLIMID [Suspect]
     Indication: MULTIPLE MYELOMA
     Dosage: REVLIMID 15MG PO DAILY X 21D ORAL
     Route: 048
     Dates: start: 20071101, end: 20080801
  4. REVLIMID [Suspect]
     Indication: MULTIPLE MYELOMA
     Dosage: REVLIMID 15MG PO DAILY X 21D ORAL
     Route: 048
     Dates: start: 20081001, end: 20100801
  5. VICODIN [Concomitant]
  6. DEXAMETHASONE [Concomitant]
  7. ASCORBIC ACID [Concomitant]

REACTIONS (4)
  - PULMONARY EMBOLISM [None]
  - LYMPHADENOPATHY [None]
  - METASTASIS [None]
  - METASTASES TO LIVER [None]
